FAERS Safety Report 6273792-7 (Version None)
Quarter: 2009Q3

REPORT INFORMATION
  Report Type: 
  Country: None (occurrence: None)
  Receive Date: 20090720
  Receipt Date: 20090710
  Transmission Date: 20100115
  Serious: Yes (Life-Threatening, Hospitalization)
  Sender: FDA-Public Use
  Company Number: B0583172A

PATIENT
  Age: 69 Year
  Sex: Female
  Weight: 105 kg

DRUGS (7)
  1. ONDANSETRON [Suspect]
     Indication: ANTIEMETIC SUPPORTIVE CARE
     Dosage: 8MG PER DAY
     Route: 002
     Dates: start: 20090225, end: 20090225
  2. OXYCONTIN [Suspect]
     Indication: ANALGESIA
     Dosage: 20MG PER DAY
     Route: 002
     Dates: start: 20090225, end: 20090226
  3. PHENELZINE SULPHATE [Concomitant]
  4. RAMIPRIL [Concomitant]
  5. DIAZEPAM [Concomitant]
  6. ORLISTAT [Concomitant]
  7. AMILORIDE HYDROCHLORIDE [Concomitant]

REACTIONS (5)
  - AGITATION [None]
  - CONFUSIONAL STATE [None]
  - HALLUCINATION [None]
  - SEROTONIN SYNDROME [None]
  - SOMNOLENCE [None]
